FAERS Safety Report 7155820-X (Version None)
Quarter: 2010Q4

REPORT INFORMATION
  Report Type: 
  Country: None (occurrence: None)
  Receive Date: 20101214
  Receipt Date: 20101130
  Transmission Date: 20110411
  Serious: Yes (Hospitalization)
  Sender: FDA-Public Use
  Company Number: US-JNJFOC-20101202656

PATIENT
  Age: 18 Year
  Sex: Female

DRUGS (12)
  1. INFLIXIMAB, RECOMBINANT [Suspect]
     Indication: CHRONIC GRANULOMATOUS DISEASE
     Dosage: RECEIVED 15 SUBSEQUENT INFUSIONS
     Route: 042
  2. INFLIXIMAB, RECOMBINANT [Suspect]
     Route: 042
  3. INFLIXIMAB, RECOMBINANT [Suspect]
     Dosage: RECEIVED A TOTAL OF 8 INFUSIONS, THEN STOPPED
     Route: 042
  4. INTERFERON GAMMA [Concomitant]
  5. MERCAPTOPURINE [Concomitant]
     Indication: ANTIINFLAMMATORY THERAPY
  6. PREDNISONE [Concomitant]
     Indication: ANTIINFLAMMATORY THERAPY
  7. MESALAMINE [Concomitant]
  8. TRIMETHOPRIM + SULFAMETHOXAZOLE [Concomitant]
     Indication: INFECTION PROPHYLAXIS
  9. METRONIDAZOLE [Concomitant]
     Indication: INFECTION PROPHYLAXIS
  10. CIPROFLOXACIN [Concomitant]
     Indication: INFECTION PROPHYLAXIS
  11. VORICONAZOLE [Concomitant]
     Indication: INFECTION PROPHYLAXIS
  12. AMINOSALICYLIC ACID [Concomitant]
     Indication: ANTIINFLAMMATORY THERAPY

REACTIONS (5)
  - BONE MARROW TRANSPLANT [None]
  - BURKHOLDERIA CEPACIA COMPLEX INFECTION [None]
  - GRAFT VERSUS HOST DISEASE [None]
  - LUNG CONSOLIDATION [None]
  - PNEUMONIA [None]
